FAERS Safety Report 12353267 (Version 6)
Quarter: 2016Q4

REPORT INFORMATION
  Report Type: Report from Study
  Country: IL (occurrence: IL)
  Receive Date: 20160510
  Receipt Date: 20161109
  Transmission Date: 20170207
  Serious: Yes (Hospitalization, Other)
  Sender: FDA-Public Use
  Company Number: PHHY2016IL063890

PATIENT
  Age: 58 Year
  Sex: Female

DRUGS (1)
  1. GILENYA [Suspect]
     Active Substance: FINGOLIMOD HYDROCHLORIDE
     Indication: MULTIPLE SCLEROSIS
     Dosage: 0.5 MG, QD
     Route: 048
     Dates: start: 20160419

REACTIONS (13)
  - Headache [Recovering/Resolving]
  - Muscular weakness [Not Recovered/Not Resolved]
  - Pain in extremity [Recovering/Resolving]
  - Gait disturbance [Unknown]
  - Dysstasia [Not Recovered/Not Resolved]
  - Humerus fracture [Unknown]
  - Muscle spasticity [Recovering/Resolving]
  - Musculoskeletal stiffness [Recovering/Resolving]
  - Balance disorder [Recovered/Resolved]
  - Pain [Unknown]
  - Dizziness [Recovered/Resolved]
  - Fall [Unknown]
  - Back pain [Recovering/Resolving]

NARRATIVE: CASE EVENT DATE: 20160504
